FAERS Safety Report 13887654 (Version 1)
Quarter: 2017Q3

REPORT INFORMATION
  Report Type: Spontaneous
  Country: US (occurrence: US)
  Receive Date: 20170821
  Receipt Date: 20170821
  Transmission Date: 20171127
  Serious: No
  Sender: FDA-Public Use
  Company Number: US-ROCHE-758977

PATIENT
  Age: 61 Year
  Sex: Male
  Weight: 125 kg

DRUGS (13)
  1. ACTEMRA [Suspect]
     Active Substance: TOCILIZUMAB
     Indication: RHEUMATOID ARTHRITIS
     Dosage: 400 MG VIAL #B0012B01  EXPIRATION FEB-11?80 MG VIAL #B0004B03  EXPIRATION SEPT-11
     Route: 042
  2. FOLIC ACID. [Concomitant]
     Active Substance: FOLIC ACID
     Route: 065
  3. ACTEMRA [Suspect]
     Active Substance: TOCILIZUMAB
     Dosage: 400 MG VIAL #B0012B02  EXPIRATION FEB-12?80 MG VIAL #B0007B03  EXPIRATION SEPT-11
     Route: 042
  4. SSZ [Concomitant]
     Active Substance: SULFASALAZINE
     Indication: RHEUMATOID ARTHRITIS
     Dosage: DOSE 1000 (UNITS NOT SPECIFIED)
     Route: 048
  5. ACTEMRA [Suspect]
     Active Substance: TOCILIZUMAB
     Dosage: 2-400 MG VIALS #B0012  EXPIRATION FEB-12
     Route: 042
  6. NIACIN. [Concomitant]
     Active Substance: NIACIN
     Indication: BLOOD CHOLESTEROL
     Route: 065
  7. PREDNISONE. [Concomitant]
     Active Substance: PREDNISONE
     Route: 065
  8. ACTEMRA [Suspect]
     Active Substance: TOCILIZUMAB
     Dosage: 400 MG VIAL #B0012B02  EXPIRATION FEB-12?80 MG VIAL #B0004B03  EXPIRATION SEPT-11
     Route: 042
  9. ACTEMRA [Suspect]
     Active Substance: TOCILIZUMAB
     Dosage: 2-400 MG VIAL #B0013B01U1  EXPIRATION FEB-12
     Route: 042
  10. ACTEMRA [Suspect]
     Active Substance: TOCILIZUMAB
     Dosage: 2-400 MG VIAL #B0013 EXPIRATION FEB-12
     Route: 042
  11. MTX [Concomitant]
     Active Substance: METHOTREXATE SODIUM
     Indication: RHEUMATOID ARTHRITIS
     Route: 048
  12. TRAZODONE [Concomitant]
     Active Substance: TRAZODONE HYDROCHLORIDE
     Indication: SOMNOLENCE
     Dosage: DOSE 200 (UNITS NOT SPECIFIED) AT BED TIME
     Route: 048
  13. ACTEMRA [Suspect]
     Active Substance: TOCILIZUMAB
     Dosage: 2-400 MG VIAL #B0014 EXPIRATION MAY-12
     Route: 042

REACTIONS (3)
  - Blood triglycerides increased [Recovered/Resolved]
  - Neutrophil count abnormal [Unknown]
  - Incision site erythema [Unknown]

NARRATIVE: CASE EVENT DATE: 20100721
